FAERS Safety Report 25267873 (Version 2)
Quarter: 2025Q2

REPORT INFORMATION
  Report Type: Spontaneous
  Country: US (occurrence: US)
  Receive Date: 20250505
  Receipt Date: 20250530
  Transmission Date: 20250717
  Serious: Yes (Hospitalization)
  Sender: ROCHE
  Company Number: US-ROCHE-10000274591

PATIENT
  Age: 77 Year
  Sex: Male

DRUGS (5)
  1. TNKASE [Suspect]
     Active Substance: TENECTEPLASE
     Indication: Ischaemic stroke
     Route: 065
     Dates: start: 20250414
  2. LOSARTAN [Concomitant]
     Active Substance: LOSARTAN
  3. TRAMADOL [Concomitant]
     Active Substance: TRAMADOL
  4. RINVOQ [Concomitant]
     Active Substance: UPADACITINIB
  5. AMBIEN [Concomitant]
     Active Substance: ZOLPIDEM TARTRATE

REACTIONS (1)
  - Cerebral haemorrhage [Recovered/Resolved]

NARRATIVE: CASE EVENT DATE: 20250414
